FAERS Safety Report 6697984-8 (Version None)
Quarter: 2010Q2

REPORT INFORMATION
  Report Type: 
  Country: None (occurrence: None)
  Receive Date: 20100427
  Receipt Date: 20100415
  Transmission Date: 20101027
  Serious: Yes (Hospitalization)
  Sender: FDA-Public Use
  Company Number: CL-JNJFOC-20100404744

PATIENT
  Sex: Female
  Weight: 72 kg

DRUGS (12)
  1. GOLIMUMAB [Suspect]
     Indication: RHEUMATOID ARTHRITIS
     Route: 058
  2. GOLIMUMAB [Suspect]
     Route: 058
  3. METHOTREXATE [Suspect]
     Indication: RHEUMATOID ARTHRITIS
     Route: 048
  4. LEVOTHYROXINE [Concomitant]
  5. FOLIC ACID [Concomitant]
  6. FUROSEMIDE [Concomitant]
  7. NIFEDIPINE [Concomitant]
  8. PREDNISONE [Concomitant]
  9. FLUOXETINE [Concomitant]
  10. OMEPRAZOLE [Concomitant]
  11. INDOMETHACIN SODIUM [Concomitant]
  12. METHOTREXATE [Concomitant]
     Route: 048

REACTIONS (2)
  - THROMBOSIS [None]
  - URINARY TRACT INFECTION [None]
